FAERS Safety Report 21381391 (Version 5)
Quarter: 2024Q4

REPORT INFORMATION
  Report Type: Report from Study
  Country: US (occurrence: US)
  Receive Date: 20220927
  Receipt Date: 20241112
  Transmission Date: 20250115
  Serious: Yes (Other)
  Sender: UCB
  Company Number: US-UCBSA-2022056602

PATIENT
  Age: 9 Year
  Sex: Male
  Weight: 33.4 kg

DRUGS (8)
  1. FINTEPLA [Suspect]
     Active Substance: FENFLURAMINE
     Indication: Lennox-Gastaut syndrome
     Dosage: 0.2 MG/KG PER DAY
  2. FINTEPLA [Suspect]
     Active Substance: FENFLURAMINE
     Dosage: 4 MILLILITER (0.6MG/KG/DAY), 2X/DAY (BID)
  3. FINTEPLA [Suspect]
     Active Substance: FENFLURAMINE
     Dosage: 4ML IN AM AND 3ML IN PM
     Dates: end: 2022
  4. FINTEPLA [Suspect]
     Active Substance: FENFLURAMINE
     Dosage: 0.2MG/KG PER DAY
     Dates: start: 2022, end: 2022
  5. FINTEPLA [Suspect]
     Active Substance: FENFLURAMINE
     Dosage: 2 MILLILITER, 2X/DAY (BID)
     Dates: start: 2022, end: 202211
  6. LEVETIRACETAM [Concomitant]
     Active Substance: LEVETIRACETAM
     Indication: Epilepsy
     Dosage: 750 MILLIGRAM, 3X/DAY (TID)
     Route: 048
  7. ONFI [Concomitant]
     Active Substance: CLOBAZAM
     Indication: Epilepsy
  8. FYCOMPA [Concomitant]
     Active Substance: PERAMPANEL
     Indication: Epilepsy
     Dosage: UNK

REACTIONS (11)
  - Urinary retention [Recovered/Resolved]
  - Irritability [Recovered/Resolved]
  - Constipation [Recovered/Resolved]
  - Psychomotor hyperactivity [Unknown]
  - Toxicity to various agents [Recovered/Resolved]
  - Aggression [Not Recovered/Not Resolved]
  - Weight decreased [Not Recovered/Not Resolved]
  - Insomnia [Recovered/Resolved]
  - Mania [Recovered/Resolved]
  - Abnormal faeces [Recovered/Resolved]
  - Product prescribing error [Unknown]

NARRATIVE: CASE EVENT DATE: 20220812
